FAERS Safety Report 16810554 (Version 2)
Quarter: 2019Q3

REPORT INFORMATION
  Report Type: Report from Study
  Country: US (occurrence: US)
  Receive Date: 20190916
  Receipt Date: 20190919
  Transmission Date: 20191005
  Serious: Yes (Hospitalization, Other)
  Sender: FDA-Public Use
  Company Number: US-GILEAD-2019-0428303

PATIENT
  Age: 31 Year
  Sex: Female

DRUGS (1)
  1. AZTREONAM LYSINE [Suspect]
     Active Substance: AZTREONAM LYSINE
     Indication: CYSTIC FIBROSIS
     Dosage: INHALE 1 VIAL VIA ALTERNA NEBULIZER 3 TIMES DAILY EVERY OTHER MONTH

REACTIONS (3)
  - Infection [Unknown]
  - Ill-defined disorder [Unknown]
  - Cystic fibrosis [Unknown]
